FAERS Safety Report 6185301-1 (Version None)
Quarter: 2009Q2

REPORT INFORMATION
  Report Type: 
  Country: None (occurrence: None)
  Receive Date: 20090511
  Receipt Date: 20090430
  Transmission Date: 20091009
  Serious: Yes (Other)
  Sender: FDA-Public Use
  Company Number: US-ROCHE-625822

PATIENT
  Sex: Female
  Weight: 85.3 kg

DRUGS (2)
  1. CAPECITABINE [Suspect]
     Indication: BREAST CANCER
     Dosage: 5TABS BID; STOPPED DUE TO PROGRESSION
     Route: 048
     Dates: start: 20080421, end: 20090324
  2. ZOMETA [Suspect]
     Route: 065
     Dates: start: 20070101

REACTIONS (3)
  - CARBOHYDRATE ANTIGEN 15-3 INCREASED [None]
  - DISEASE PROGRESSION [None]
  - PALMAR-PLANTAR ERYTHRODYSAESTHESIA SYNDROME [None]
